FAERS Safety Report 11092615 (Version 3)
Quarter: 2015Q4

REPORT INFORMATION
  Report Type: Spontaneous
  Country: FR (occurrence: FR)
  Receive Date: 20150506
  Receipt Date: 20151015
  Transmission Date: 20160304
  Serious: Yes (Hospitalization, Other)
  Sender: FDA-Public Use
  Company Number: FR-TEVA-560526ISR

PATIENT
  Age: 83 Year
  Sex: Male

DRUGS (1)
  1. GEMCITABINE [Suspect]
     Active Substance: GEMCITABINE\GEMCITABINE HYDROCHLORIDE
     Indication: PANCREATIC CARCINOMA METASTATIC
     Dosage: 1000 MG/ME2, OVER A 30 MIN INTRAVENOUS INFUSION ON DAYS 1, 8, AND 15 OF A 28 DAY-CYCLE
     Route: 041

REACTIONS (1)
  - Pulmonary veno-occlusive disease [Recovering/Resolving]

NARRATIVE: CASE EVENT DATE: 201309
